FAERS Safety Report 22086850 (Version 6)
Quarter: 2024Q3

REPORT INFORMATION
  Report Type: Report from Study
  Country: US (occurrence: US)
  Receive Date: 20230312
  Receipt Date: 20240809
  Transmission Date: 20241017
  Serious: No
  Sender: NOVARTIS
  Company Number: US-002147023-NVSC2023US055764

PATIENT
  Age: 75 Year
  Sex: Female

DRUGS (3)
  1. LEQVIO [Suspect]
     Active Substance: INCLISIRAN SODIUM
     Indication: Product used for unknown indication
     Dosage: UNK
     Route: 058
     Dates: start: 20230109
  2. LEQVIO [Suspect]
     Active Substance: INCLISIRAN SODIUM
     Dosage: UNK, (LAST INJECTION)
     Route: 065
     Dates: start: 20230410
  3. LEQVIO [Suspect]
     Active Substance: INCLISIRAN SODIUM
     Dosage: UNK, RECENT INJECTION (BEGINNING OF MAY)
     Route: 065

REACTIONS (11)
  - Weight increased [Unknown]
  - Urinary tract infection [Unknown]
  - Pain in extremity [Recovered/Resolved]
  - Fatigue [Unknown]
  - COVID-19 [Unknown]
  - Peripheral swelling [Unknown]
  - Rash [Unknown]
  - Pain in extremity [Unknown]
  - Arthralgia [Unknown]
  - Insomnia [Unknown]
  - Gait disturbance [Unknown]

NARRATIVE: CASE EVENT DATE: 20230109
